FAERS Safety Report 26036029 (Version 1)
Quarter: 2025Q4

REPORT INFORMATION
  Report Type: Spontaneous
  Country: JP (occurrence: JP)
  Receive Date: 20251112
  Receipt Date: 20251112
  Transmission Date: 20260117
  Serious: Yes (Other)
  Sender: SUNOVION
  Company Number: JP-SMPA-2025SMP009509

PATIENT
  Age: 26 Year
  Sex: Female

DRUGS (12)
  1. LATUDA [Suspect]
     Active Substance: LURASIDONE HYDROCHLORIDE
     Indication: Bipolar disorder
     Dosage: 60 MG, QD
     Route: 048
     Dates: start: 202202
  2. LATUDA [Suspect]
     Active Substance: LURASIDONE HYDROCHLORIDE
     Dosage: 40 MG, QD
     Route: 048
     Dates: start: 202402
  3. LATUDA [Suspect]
     Active Substance: LURASIDONE HYDROCHLORIDE
     Dosage: 60 MG, QD
     Route: 048
     Dates: start: 202402
  4. LATUDA [Suspect]
     Active Substance: LURASIDONE HYDROCHLORIDE
     Dosage: 80 MG, QD
     Route: 048
     Dates: start: 202404
  5. SOLANAX [Concomitant]
     Active Substance: ALPRAZOLAM
     Dosage: UNK, AS NECESSARY
  6. CONCERTA [Concomitant]
     Active Substance: METHYLPHENIDATE HYDROCHLORIDE
     Dosage: 18 MG, QD
     Dates: start: 202202
  7. CONCERTA [Concomitant]
     Active Substance: METHYLPHENIDATE HYDROCHLORIDE
     Dosage: 27 MG, QD
     Dates: start: 202402
  8. FLUNITRAZEPAM [Concomitant]
     Active Substance: FLUNITRAZEPAM
     Indication: Poor quality sleep
     Dosage: 1 MG, QD
     Dates: start: 202402
  9. FLUNITRAZEPAM [Concomitant]
     Active Substance: FLUNITRAZEPAM
     Dosage: 3 MG, QD
     Dates: start: 202404
  10. RISPERDAL [Concomitant]
     Active Substance: RISPERIDONE
     Indication: Anxiety
     Dosage: 2 ML, AS NECESSARY
     Route: 048
     Dates: start: 202403
  11. NAUZELIN [Concomitant]
     Active Substance: DOMPERIDONE
     Dosage: UNK
  12. PARLODEL [Concomitant]
     Active Substance: BROMOCRIPTINE MESYLATE
     Dosage: UNK

REACTIONS (11)
  - Hyperprolactinaemia [Unknown]
  - Diverticulitis [Unknown]
  - Nausea [Unknown]
  - Abdominal discomfort [Unknown]
  - Galactorrhoea [Unknown]
  - Back pain [Unknown]
  - Hypomania [Unknown]
  - Blood triglycerides increased [Unknown]
  - Chest discomfort [Unknown]
  - Prescribed overdose [Unknown]
  - Prescribed overdose [Unknown]

NARRATIVE: CASE EVENT DATE: 20220201
